FAERS Safety Report 9411505 (Version 1)
Quarter: 2013Q3

REPORT INFORMATION
  Report Type: Spontaneous
  Country: US (occurrence: None)
  Receive Date: 20130718
  Receipt Date: 20130718
  Transmission Date: 20140515
  Serious: No
  Sender: FDA-Public Use
  Company Number: None

PATIENT
  Age: 86 Year
  Sex: Female
  Weight: 81.65 kg

DRUGS (3)
  1. DILTIAZEM HCL [Suspect]
     Indication: ATRIAL FIBRILLATION
     Dosage: 1 CAP
     Route: 048
     Dates: start: 2010
  2. DILTIAZEM HCL [Suspect]
     Indication: SLEEP APNOEA SYNDROME
     Dosage: 1 CAP
     Route: 048
     Dates: start: 2010
  3. DILTIAZEM HCL [Suspect]
     Indication: CARDIAC PACEMAKER INSERTION
     Dosage: 1 CAP
     Route: 048
     Dates: start: 2010

REACTIONS (7)
  - Joint swelling [None]
  - Joint swelling [None]
  - Depressed mood [None]
  - Fatigue [None]
  - Dizziness [None]
  - Headache [None]
  - Ill-defined disorder [None]
